FAERS Safety Report 22525026 (Version 1)
Quarter: 2023Q2

REPORT INFORMATION
  Report Type: Spontaneous
  Country: US (occurrence: None)
  Receive Date: 20230605
  Receipt Date: 20230605
  Transmission Date: 20230721
  Serious: No
  Sender: FDA-Public Use
  Company Number: None

PATIENT
  Age: 52 Year
  Sex: Female
  Weight: 65.25 kg

DRUGS (2)
  1. BIEST 5.0 ESTROGEN CREAM [Suspect]
     Active Substance: ESTRADIOL\ESTRIOL
     Indication: Menopause
     Dosage: FREQUENCY : AT BEDTIME;?
     Route: 061
  2. LEVOTHYROXINE [Concomitant]
     Active Substance: LEVOTHYROXINE

REACTIONS (2)
  - Drug ineffective [None]
  - Disease recurrence [None]

NARRATIVE: CASE EVENT DATE: 20230603
